FAERS Safety Report 14142684 (Version 2)
Quarter: 2017Q4

REPORT INFORMATION
  Report Type: Spontaneous
  Country: IT (occurrence: IT)
  Receive Date: 20171030
  Receipt Date: 20171114
  Transmission Date: 20180321
  Serious: Yes (Hospitalization, Other)
  Sender: FDA-Public Use
  Company Number: IT-MYLANLABS-2017M1065397

PATIENT
  Age: 50 Year
  Sex: Male

DRUGS (6)
  1. EMTRICITABINE/TENOFOVIR DISOPROXIL FUMARATE [Suspect]
     Active Substance: EMTRICITABINE\TENOFOVIR DISOPROXIL FUMARATE
     Indication: HIV INFECTION
     Route: 065
  2. ATAZANAVIR/RITONAVIR [Interacting]
     Active Substance: ATAZANAVIR\RITONAVIR
     Indication: HIV INFECTION
     Route: 065
  3. ABACAVIR SULFATE/LAMIVUDINE [Interacting]
     Active Substance: ABACAVIR SULFATE\LAMIVUDINE
     Indication: HIV INFECTION
     Route: 065
  4. RIBAVIRIN. [Interacting]
     Active Substance: RIBAVIRIN
     Dosage: 30MG
     Route: 065
  5. SOFOSBUVIR [Concomitant]
     Active Substance: SOFOSBUVIR
     Indication: HEPATITIS C
     Dosage: 400MG
     Route: 065
     Dates: start: 2015
  6. RIBAVIRIN. [Interacting]
     Active Substance: RIBAVIRIN
     Indication: HEPATITIS C
     Dosage: 1000MG
     Route: 065
     Dates: start: 2015

REACTIONS (6)
  - Hyperbilirubinaemia [Recovered/Resolved]
  - Hydrocholecystis [None]
  - Anaemia [Recovered/Resolved]
  - Jaundice [Recovered/Resolved]
  - Renal disorder [Recovered/Resolved]
  - Cholelithiasis [Recovered/Resolved]
